FAERS Safety Report 6781250-6 (Version None)
Quarter: 2010Q2

REPORT INFORMATION
  Report Type: 
  Country: None (occurrence: None)
  Receive Date: 20100621
  Receipt Date: 20100607
  Transmission Date: 20101027
  Serious: Yes (Hospitalization, Other)
  Sender: FDA-Public Use
  Company Number: PHHY2010DE38935

PATIENT
  Age: 70 Year
  Sex: Male

DRUGS (7)
  1. ENTACAPONE-LEVODOPA-CARBIDOPA [Suspect]
     Indication: PARKINSON'S DISEASE
     Dosage: 400 MG
  2. HYDROCHLOROTHIAZIDE [Suspect]
  3. QUETIAPINE [Suspect]
     Dosage: 12.5 MG
  4. ROTIGOTINE [Suspect]
     Dosage: 8 MG
  5. ROTIGOTINE [Suspect]
     Dosage: 16 MG
  6. RASAGILINE [Suspect]
     Indication: ON AND OFF PHENOMENON
     Dosage: UNK
  7. RASAGILINE [Suspect]
     Dosage: UNK

REACTIONS (10)
  - ABNORMAL BEHAVIOUR [None]
  - ALANINE AMINOTRANSFERASE INCREASED [None]
  - ASPARTATE AMINOTRANSFERASE INCREASED [None]
  - BLOOD CREATINE PHOSPHOKINASE INCREASED [None]
  - BLOOD CREATINE PHOSPHOKINASE MB [None]
  - BLOOD LACTATE DEHYDROGENASE INCREASED [None]
  - CONFUSIONAL STATE [None]
  - HYPERHIDROSIS [None]
  - OEDEMA PERIPHERAL [None]
  - RHABDOMYOLYSIS [None]
